FAERS Safety Report 4732393-X (Version None)
Quarter: 2005Q3

REPORT INFORMATION
  Report Type: 
  Country: None (occurrence: None)
  Receive Date: 20050803
  Receipt Date: 20050715
  Transmission Date: 20060218
  Serious: Yes (Death, Hospitalization)
  Sender: FDA-Public Use
  Company Number: PHBS2005TW10182

PATIENT
  Age: 70 Year
  Sex: Female
  Weight: 57 kg

DRUGS (12)
  1. STARLIX [Suspect]
     Indication: DIABETES MELLITUS
     Dosage: 360 MG, UNK
     Route: 048
     Dates: start: 20050608, end: 20050614
  2. FOLIC ACID [Concomitant]
     Dosage: 1 TAB/DAY
  3. VITAMINS [Concomitant]
     Dosage: 1 CAP/DAY
  4. CACO3 [Concomitant]
     Dosage: 3 TAB/DAY
  5. TAPAL [Concomitant]
     Dosage: 1 TAB/DAY
  6. ISMO [Concomitant]
     Dosage: 2 TAB/DAY
  7. GLUCOBAY [Concomitant]
     Dosage: 3 TAB/DAY
  8. NORMACOL [Concomitant]
     Dosage: 1 PACK/DAY
  9. MUCOSOLVON [Concomitant]
     Dosage: 3 TAB/DAY
  10. NOVONORM [Concomitant]
     Dates: end: 20050607
  11. DIFLUCO [Concomitant]
  12. BAKTAR [Suspect]
     Indication: URINARY TRACT INFECTION
     Dosage: 1600 MG, QD
     Dates: start: 20050528, end: 20050602

REACTIONS (7)
  - BLISTER [None]
  - MOUTH ULCERATION [None]
  - MUCOSAL ULCERATION [None]
  - RASH [None]
  - SKIN HAEMORRHAGE [None]
  - STEVENS-JOHNSON SYNDROME [None]
  - TOXIC EPIDERMAL NECROLYSIS [None]
